FAERS Safety Report 7049291-1 (Version None)
Quarter: 2010Q4

REPORT INFORMATION
  Report Type: 
  Country: None (occurrence: None)
  Receive Date: 20101018
  Receipt Date: 20101006
  Transmission Date: 20110411
  Serious: Yes (Hospitalization)
  Sender: FDA-Public Use
  Company Number: JP-ELI_LILLY_AND_COMPANY-JP201005001973

PATIENT
  Sex: Male
  Weight: 74 kg

DRUGS (10)
  1. GEMCITABINE HCL [Suspect]
     Indication: PANCREATIC CARCINOMA NON-RESECTABLE
     Dosage: 1825 MG, OTHER
     Route: 042
     Dates: start: 20091125
  2. GEMCITABINE HCL [Suspect]
     Dosage: 1460 MG, OTHER
     Route: 042
     Dates: start: 20100804, end: 20100901
  3. OTS102 [Suspect]
     Indication: PANCREATIC CARCINOMA NON-RESECTABLE
     Dosage: 1 ML, OTHER
     Route: 058
     Dates: start: 20091125, end: 20100901
  4. LOXONIN [Concomitant]
     Indication: PAIN
     Dosage: 10 MG, 2/D
     Route: 048
     Dates: start: 20100106
  5. LOXONIN [Concomitant]
     Dosage: 60 MG, 3/D
     Route: 048
     Dates: start: 20100716
  6. MAGMITT [Concomitant]
     Indication: CONSTIPATION PROPHYLAXIS
     Dosage: 500 MG, 3/D
     Route: 048
     Dates: start: 20091116
  7. TAKEPRON [Concomitant]
     Indication: PROPHYLAXIS
     Dosage: UNK, AS NEEDED
     Route: 048
     Dates: start: 20100204
  8. TAKEPRON [Concomitant]
     Dosage: 15 MG, AS NEEDED
     Route: 048
     Dates: start: 20100713
  9. NAUZELIN [Concomitant]
     Indication: PROPHYLAXIS OF NAUSEA AND VOMITING
     Dosage: 30 MG, UNK
     Route: 048
     Dates: start: 20100915
  10. TS 1 [Concomitant]
     Indication: PANCREATIC CARCINOMA NON-RESECTABLE
     Dosage: 80 MG, OTHER
     Route: 048
     Dates: start: 20100908

REACTIONS (1)
  - CHOLANGITIS [None]
